FAERS Safety Report 17326486 (Version 1)
Quarter: 2020Q1

REPORT INFORMATION
  Report Type: Spontaneous
  Country: ES (occurrence: ES)
  Receive Date: 20200127
  Receipt Date: 20200127
  Transmission Date: 20200409
  Serious: Yes (Life-Threatening, Hospitalization, Other)
  Sender: FDA-Public Use
  Company Number: ES-MYLANLABS-2019M1120505

PATIENT
  Age: 57 Year
  Sex: Female

DRUGS (13)
  1. SERTRALINE [Suspect]
     Active Substance: SERTRALINE HYDROCHLORIDE
     Indication: BIPOLAR DISORDER
     Dosage: 200 MILLIGRAM QD
     Route: 065
  2. PIMOZIDE. [Suspect]
     Active Substance: PIMOZIDE
     Indication: BIPOLAR DISORDER
  3. SERTRALINE [Suspect]
     Active Substance: SERTRALINE HYDROCHLORIDE
     Indication: MANIA
     Dosage: 25 MG, 1X/DAY
     Route: 065
  4. HALOPERIDOL. [Suspect]
     Active Substance: HALOPERIDOL
     Indication: BIPOLAR DISORDER
     Dosage: 3 MG, 1X/DAY
     Route: 065
  5. HYDROXYZINE [Concomitant]
     Active Substance: HYDROXYZINE HYDROCHLORIDE
     Indication: BIPOLAR DISORDER
     Dosage: 50 MG, 1X/DAY
     Route: 065
  6. HYDROXYZINE [Concomitant]
     Active Substance: HYDROXYZINE HYDROCHLORIDE
     Indication: MANIA
  7. LORMETAZEPAM [Concomitant]
     Active Substance: LORMETAZEPAM
     Indication: BIPOLAR DISORDER
  8. SIMVASTATIN. [Concomitant]
     Active Substance: SIMVASTATIN
     Indication: DYSLIPIDAEMIA
     Dosage: 10 MILLIGRAM, QD
     Route: 065
  9. TRAZODONE [Suspect]
     Active Substance: TRAZODONE HYDROCHLORIDE
     Indication: BIPOLAR DISORDER
  10. PIMOZIDE. [Suspect]
     Active Substance: PIMOZIDE
     Indication: MANIA
     Dosage: 2 MG, 1X/DAY
     Route: 065
  11. HALOPERIDOL. [Suspect]
     Active Substance: HALOPERIDOL
     Indication: MANIA
     Dosage: 0.7 MG, 1X/DAY
     Route: 065
  12. LORMETAZEPAM [Concomitant]
     Active Substance: LORMETAZEPAM
     Indication: MANIA
     Dosage: 2 MILLIGRAM, QD
     Route: 065
  13. TRAZODONE [Suspect]
     Active Substance: TRAZODONE HYDROCHLORIDE
     Indication: MANIA
     Dosage: 200 MG, 1X/DAY
     Route: 065

REACTIONS (5)
  - Inappropriate antidiuretic hormone secretion [Unknown]
  - Polymyalgia rheumatica [Unknown]
  - Normocytic anaemia [Recovering/Resolving]
  - Serotonin syndrome [Recovering/Resolving]
  - Neuroleptic malignant syndrome [Recovering/Resolving]
